FAERS Safety Report 5017869-2 (Version None)
Quarter: 2006Q2

REPORT INFORMATION
  Report Type: 
  Country: None (occurrence: None)
  Receive Date: 20060605
  Receipt Date: 20060525
  Transmission Date: 20061013
  Serious: Yes (Hospitalization)
  Sender: FDA-Public Use
  Company Number: 2006CG00969

PATIENT
  Age: 84 Year
  Sex: Male

DRUGS (3)
  1. ZESTORETIC [Suspect]
     Indication: HYPERTENSION
     Dosage: 20 + 12.5 MG
     Route: 048
  2. LEXOMIL [Concomitant]
  3. TAGAMET [Concomitant]

REACTIONS (1)
  - PSEUDO LYMPHOMA [None]
